FAERS Safety Report 14518679 (Version 1)
Quarter: 2018Q1

REPORT INFORMATION
  Report Type: Spontaneous
  Country: US (occurrence: US)
  Receive Date: 20180212
  Receipt Date: 20180212
  Transmission Date: 20180509
  Serious: Yes (Hospitalization)
  Sender: FDA-Public Use
  Company Number: US-DSJP-DSU-2017-144166

PATIENT

DRUGS (2)
  1. BENICAR [Suspect]
     Active Substance: OLMESARTAN MEDOXOMIL
     Indication: HYPERTENSION
     Dosage: 5 MG, UNK
     Dates: start: 20111221, end: 20141001
  2. BENICAR [Suspect]
     Active Substance: OLMESARTAN MEDOXOMIL
     Dosage: 40 MG, QD
     Dates: start: 20111221, end: 20141001

REACTIONS (4)
  - Hypotension [Unknown]
  - Colitis microscopic [Recovering/Resolving]
  - Haemorrhoids [Unknown]
  - Polyp [Unknown]

NARRATIVE: CASE EVENT DATE: 20120710
